FAERS Safety Report 9674470 (Version 2)
Quarter: 2013Q4

REPORT INFORMATION
  Report Type: Spontaneous
  Country: JP (occurrence: JP)
  Receive Date: 20131107
  Receipt Date: 20131226
  Transmission Date: 20140711
  Serious: Yes (Death, Other)
  Sender: FDA-Public Use
  Company Number: JP-AMGEN-JPNSP2013077943

PATIENT
  Age: 57 Year
  Sex: Female
  Weight: 62 kg

DRUGS (5)
  1. VECTIBIX [Suspect]
     Indication: COLON CANCER
     Dosage: 360 MG, Q2WK
     Route: 041
     Dates: start: 20130927, end: 20131011
  2. ELPLAT [Concomitant]
     Indication: COLON CANCER
     Dosage: 140 MG, Q2WK
     Route: 041
     Dates: start: 20130927, end: 20130927
  3. 5 FU [Concomitant]
     Indication: COLON CANCER
     Dosage: 650 MG, Q2WK
     Route: 040
     Dates: start: 20130927, end: 20130927
  4. 5 FU [Concomitant]
     Dosage: 3950 MG, Q2WK
     Route: 041
     Dates: start: 20130927, end: 20130929
  5. LEVOFOLINATE [Concomitant]
     Indication: COLON CANCER
     Dosage: 325 MG, Q2WK
     Route: 041
     Dates: start: 20130927, end: 20130927

REACTIONS (2)
  - Liver carcinoma ruptured [Fatal]
  - Infusion related reaction [Unknown]
